FAERS Safety Report 4738638-4 (Version None)
Quarter: 2005Q3

REPORT INFORMATION
  Report Type: 
  Country: None (occurrence: None)
  Receive Date: 20050803
  Receipt Date: 20050720
  Transmission Date: 20060218
  Serious: No
  Sender: FDA-Public Use
  Company Number: FR_050706870

PATIENT
  Age: 22 Year
  Sex: Female

DRUGS (2)
  1. ZYPREXA [Suspect]
     Indication: ANXIETY
     Dosage: 10 MG DAY
     Dates: start: 20050705, end: 20050715
  2. PAROXETINE HYDROCHLORIDE [Concomitant]

REACTIONS (3)
  - ANXIETY [None]
  - DISEASE RECURRENCE [None]
  - EPISTAXIS [None]
